FAERS Safety Report 12745179 (Version 1)
Quarter: 2016Q3

REPORT INFORMATION
  Report Type: Report from Study
  Country: US (occurrence: US)
  Receive Date: 20160915
  Receipt Date: 20160915
  Transmission Date: 20161109
  Serious: Yes (Other)
  Sender: FDA-Public Use
  Company Number: US-ROCHE-1830019

PATIENT
  Age: 51 Year
  Sex: Male
  Weight: 76.5 kg

DRUGS (2)
  1. TEMSIROLIMUS [Suspect]
     Active Substance: TEMSIROLIMUS
     Indication: HEPATOCELLULAR CARCINOMA
     Dosage: (15-70) MG DAYS 1, 8, 15, AND 22
     Route: 042
     Dates: start: 20100818
  2. BEVACIZUMAB [Suspect]
     Active Substance: BEVACIZUMAB
     Indication: HEPATOCELLULAR CARCINOMA
     Dosage: (750-1530) MG, (30 TO 90 MINS ON DAY 1 AND 15, CYCLE 28 DAYS AS PER PROTOCOL)
     Route: 042
     Dates: start: 20100818

REACTIONS (2)
  - Blood bilirubin increased [Unknown]
  - Platelet count decreased [Unknown]
